FAERS Safety Report 8247375-3 (Version None)
Quarter: 2012Q1

REPORT INFORMATION
  Report Type: 
  Country: None (occurrence: None)
  Receive Date: 20120330
  Receipt Date: 20120329
  Transmission Date: 20120608
  Serious: No
  Sender: FDA-Public Use
  Company Number: US-PFIZER INC-2012080867

PATIENT
  Age: 60 Year
  Sex: Female
  Weight: 56.689 kg

DRUGS (6)
  1. PRILOSEC [Concomitant]
     Indication: GASTRIC DISORDER
     Dosage: UNK
  2. CLARINEX [Concomitant]
     Dosage: 5 MG, DAILY
  3. ADVAIR DISKUS 100/50 [Concomitant]
     Indication: HYPERSENSITIVITY
     Dosage: 250/50 MCG, 2X/DAY
  4. LIPITOR [Suspect]
     Indication: BLOOD CHOLESTEROL INCREASED
     Dosage: 10 MG, DAILY
     Route: 048
     Dates: end: 20120301
  5. LEVOTHYROXINE SODIUM [Concomitant]
     Indication: HYPOTHYROIDISM
     Dosage: UNK
  6. FLONASE [Concomitant]
     Dosage: UNK, AS NEEDED

REACTIONS (1)
  - CONTUSION [None]
